FAERS Safety Report 24921419 (Version 2)
Quarter: 2025Q4

REPORT INFORMATION
  Report Type: Spontaneous
  Country: EU (occurrence: EU)
  Receive Date: 20250204
  Receipt Date: 20251106
  Transmission Date: 20260118
  Serious: Yes (Disabling)
  Sender: TEVA
  Company Number: None

PATIENT
  Age: 68 Year
  Sex: Female

DRUGS (2)
  1. EZETIMIBE [Suspect]
     Active Substance: EZETIMIBE
     Indication: Hypercholesterolaemia
     Dosage: EZETIMIBE TEVA*30 TABLETS 10 MG: 1 TABLET/DAY
     Route: 048
     Dates: start: 20241206, end: 20241227
  2. TENORETIC [Concomitant]
     Active Substance: ATENOLOL\CHLORTHALIDONE
     Indication: Hypertension
     Dosage: TENORETIC*28 TABLETS 50 MG + 12.5 MG: 1 TABLET/DAY
     Route: 048

REACTIONS (2)
  - Myalgia [Recovered/Resolved]
  - Gait inability [Recovered/Resolved]

NARRATIVE: CASE EVENT DATE: 20241201
